FAERS Safety Report 15472810 (Version 1)
Quarter: 2018Q4

REPORT INFORMATION
  Report Type: Spontaneous
  Country: US (occurrence: US)
  Receive Date: 20181008
  Receipt Date: 20181008
  Transmission Date: 20190205
  Serious: No
  Sender: FDA-Public Use
  Company Number: US-PFIZER INC-2018401070

PATIENT
  Age: 77 Year
  Sex: Female
  Weight: 92.99 kg

DRUGS (2)
  1. HYDROCODONE [Concomitant]
     Active Substance: HYDROCODONE
     Indication: PAIN
     Dosage: UNK, (UP TO SIX A DAY)
     Route: 048
  2. XELJANZ [Suspect]
     Active Substance: TOFACITINIB CITRATE
     Indication: ARTHRITIS
     Dosage: 5 MG, 2X/DAY
     Route: 048
     Dates: start: 2018, end: 20180928

REACTIONS (6)
  - Swelling face [Not Recovered/Not Resolved]
  - Epistaxis [Recovered/Resolved]
  - Foot fracture [Unknown]
  - Gait disturbance [Unknown]
  - Skin ulcer [Recovering/Resolving]
  - Erythema [Unknown]

NARRATIVE: CASE EVENT DATE: 201809
